FAERS Safety Report 5485948-1 (Version None)
Quarter: 2007Q4

REPORT INFORMATION
  Report Type: 
  Country: None (occurrence: None)
  Receive Date: 20071012
  Receipt Date: 20071001
  Transmission Date: 20080405
  Serious: Yes (Other)
  Sender: FDA-Public Use
  Company Number: E3810-01284-SPO-SA

PATIENT
  Age: 24 Month
  Sex: Male

DRUGS (4)
  1. RABEPRAZOLE SODIUM [Suspect]
     Indication: HELICOBACTER INFECTION
     Dosage: 20 MG, 1 IN 1 D, ORAL; 40 MG, 2 IN 1 D, ORAL
     Route: 048
  2. WARFARIN SODIUM [Concomitant]
  3. CLARITHROMYCIN [Concomitant]
  4. AMOXICILLIN [Concomitant]

REACTIONS (2)
  - HAEMORRHAGE SUBCUTANEOUS [None]
  - INTERNATIONAL NORMALISED RATIO INCREASED [None]
